FAERS Safety Report 25911749 (Version 1)
Quarter: 2025Q4

REPORT INFORMATION
  Report Type: Spontaneous
  Country: US (occurrence: US)
  Receive Date: 20251013
  Receipt Date: 20251013
  Transmission Date: 20260117
  Serious: No
  Sender: ELI LILLY AND COMPANY
  Company Number: US-ELI_LILLY_AND_COMPANY-US202510010998

PATIENT
  Age: 80 Year
  Sex: Female

DRUGS (1)
  1. EBGLYSS [Suspect]
     Active Substance: LEBRIKIZUMAB-LBKZ
     Indication: Dermatitis atopic
     Dosage: 500 MG, UNKNOWN (EBGLYSS 259MG/2 ML PFP 2X2ML
     Route: 065
     Dates: start: 20250930

REACTIONS (1)
  - Drug ineffective [Unknown]
